FAERS Safety Report 8433246-6 (Version None)
Quarter: 2012Q2

REPORT INFORMATION
  Report Type: 
  Country: None (occurrence: None)
  Receive Date: 20120607
  Receipt Date: 20120523
  Transmission Date: 20120825
  Serious: No
  Sender: FDA-Public Use
  Company Number: TPA2012A03156

PATIENT
  Age: 87 Year
  Sex: Female

DRUGS (8)
  1. ARLEVERT (CINNARIZINE, DIMENHYDRINATE) [Concomitant]
  2. PANTOPRAZOL (PANTOPRAZOLE SODIUM) [Concomitant]
  3. ADENURIC (FEBUXOSTAT) [Suspect]
     Indication: HYPERURICAEMIA
     Dosage: 80 MG (80 MG, 1 IN 1 D) ORAL
     Route: 048
     Dates: start: 20120509, end: 20120523
  4. ASPIRIN [Concomitant]
  5. VOCADO HCT (OLMESARTAN MEDOXOMIL) [Concomitant]
  6. TORSEMIDE [Concomitant]
  7. BISOPROLOL FUMARATE [Concomitant]
  8. L-THYROX (LEVOTHYROXINE SODIUM) [Concomitant]

REACTIONS (1)
  - ERYTHEMA MULTIFORME [None]
